FAERS Safety Report 15011649 (Version 2)
Quarter: 2018Q3

REPORT INFORMATION
  Report Type: Spontaneous
  Country: JP (occurrence: JP)
  Receive Date: 20180614
  Receipt Date: 20180713
  Transmission Date: 20181010
  Serious: Yes (Death, Hospitalization, Disabling, Other)
  Sender: FDA-Public Use
  Company Number: JP-GLAXOSMITHKLINE-JP2018JPN081392

PATIENT
  Age: 44 Year
  Sex: Male
  Weight: 73 kg

DRUGS (8)
  1. SAMTIREL [Suspect]
     Active Substance: ATOVAQUONE
     Indication: TUBERCULOSIS OF CENTRAL NERVOUS SYSTEM
  2. CYCLOSERINE. [Concomitant]
     Active Substance: CYCLOSERINE
     Indication: TUBERCULOSIS OF CENTRAL NERVOUS SYSTEM
     Dosage: UNK UNK, QD
  3. CARBAZOCHROME SULFONATE NA TABLETS [Concomitant]
     Dosage: 30 MG, BID
  4. PYRAMIDE [Concomitant]
     Active Substance: PYRAZINAMIDE
     Indication: TUBERCULOSIS OF CENTRAL NERVOUS SYSTEM
     Dosage: UNK UNK, QOD
  5. ISCOTIN (JAPAN) [Concomitant]
     Indication: TUBERCULOSIS OF CENTRAL NERVOUS SYSTEM
     Dosage: UNK UNK, QD
  6. SAMTIREL [Suspect]
     Active Substance: ATOVAQUONE
     Indication: INFECTION PROPHYLAXIS
     Dosage: 10 ML, QOD
     Route: 048
     Dates: start: 20161121
  7. AVELOX [Concomitant]
     Active Substance: MOXIFLOXACIN HYDROCHLORIDE
     Indication: TUBERCULOSIS OF CENTRAL NERVOUS SYSTEM
     Dosage: UNK UNK, QD
  8. TUBERMIN [Concomitant]
     Active Substance: ETHIONAMIDE
     Indication: TUBERCULOSIS OF CENTRAL NERVOUS SYSTEM
     Dosage: UNK UNK, TID

REACTIONS (21)
  - Effusion [Unknown]
  - Nephrotic syndrome [Not Recovered/Not Resolved]
  - Muscle haemorrhage [Recovering/Resolving]
  - Haematuria [Unknown]
  - Myositis ossificans [Recovering/Resolving]
  - Death [Fatal]
  - Wound sepsis [Not Recovered/Not Resolved]
  - Oedema [Unknown]
  - Hypothyroidism [Recovering/Resolving]
  - Post infection glomerulonephritis [Unknown]
  - Calcinosis [Recovering/Resolving]
  - Adrenal insufficiency [Recovering/Resolving]
  - Herpes zoster [Recovering/Resolving]
  - Post herpetic neuralgia [Recovering/Resolving]
  - Renal impairment [Not Recovered/Not Resolved]
  - Haemorrhage [Unknown]
  - Dehydration [Unknown]
  - Haemarthrosis [Recovering/Resolving]
  - Diabetes mellitus [Recovering/Resolving]
  - Product use issue [Unknown]
  - Cellulitis [Not Recovered/Not Resolved]

NARRATIVE: CASE EVENT DATE: 201702
